APPROVED DRUG PRODUCT: EZETIMIBE
Active Ingredient: EZETIMIBE
Strength: 10MG
Dosage Form/Route: TABLET;ORAL
Application: A209234 | Product #001 | TE Code: AB
Applicant: ALKEM LABORATORIES LTD
Approved: Dec 21, 2017 | RLD: No | RS: No | Type: RX